FAERS Safety Report 5808543-0 (Version None)
Quarter: 2008Q3

REPORT INFORMATION
  Report Type: 
  Country: None (occurrence: None)
  Receive Date: 20080702
  Receipt Date: 20080310
  Transmission Date: 20090109
  Serious: Yes (Other)
  Sender: FDA-Public Use
  Company Number: US-WYE-H03089508

PATIENT
  Age: 51 Year
  Sex: Female
  Weight: 68.1 kg

DRUGS (1)
  1. ADVIL [Suspect]
     Indication: DYSMENORRHOEA
     Dosage: 3 TABLET 1X PER 6 HR, ORAL
     Route: 048
     Dates: start: 20071201

REACTIONS (6)
  - HYPERSENSITIVITY [None]
  - INCORRECT DOSE ADMINISTERED [None]
  - OVERDOSE [None]
  - RASH [None]
  - SWELLING FACE [None]
  - URTICARIA [None]
